FAERS Safety Report 9815267 (Version 3)
Quarter: 2014Q1

REPORT INFORMATION
  Report Type: Report from Study
  Country: CA (occurrence: CA)
  Receive Date: 20140114
  Receipt Date: 20140130
  Transmission Date: 20141002
  Serious: Yes (Other)
  Sender: FDA-Public Use
  Company Number: CA-JNJFOC-20140104703

PATIENT
  Age: 54 Year
  Sex: Female
  Weight: 115 kg

DRUGS (1)
  1. REMICADE [Suspect]
     Indication: PYODERMA GANGRENOSUM
     Route: 042
     Dates: start: 20120828

REACTIONS (4)
  - Obesity surgery [Unknown]
  - Post procedural complication [Unknown]
  - Urinary tract infection [Unknown]
  - Off label use [Unknown]
